FAERS Safety Report 7568701-4 (Version None)
Quarter: 2011Q2

REPORT INFORMATION
  Report Type: 
  Country: None (occurrence: None)
  Receive Date: 20110623
  Receipt Date: 20110610
  Transmission Date: 20111010
  Serious: Yes (Hospitalization)
  Sender: FDA-Public Use
  Company Number: JP-JNJFOC-20110606829

PATIENT
  Sex: Male
  Weight: 58 kg

DRUGS (6)
  1. ELENTAL [Concomitant]
     Indication: MEDICAL DIET
     Dosage: 3 TO 4 PER DAY
     Route: 048
  2. ISONIAZID [Concomitant]
     Route: 048
     Dates: start: 20090110, end: 20110514
  3. REMICADE [Suspect]
     Dosage: 12TH DOSE
     Route: 042
     Dates: start: 20110326
  4. REMICADE [Suspect]
     Indication: CROHN'S DISEASE
     Dosage: 2ND THRU 11TH DOSES
     Route: 042
  5. REMICADE [Suspect]
     Route: 042
     Dates: start: 20090228
  6. PENTASA [Concomitant]
     Route: 048
     Dates: start: 19950401, end: 20110515

REACTIONS (2)
  - PULMONARY TUBERCULOSIS [None]
  - INTESTINAL OBSTRUCTION [None]
